FAERS Safety Report 4833471-7 (Version None)
Quarter: 2005Q4

REPORT INFORMATION
  Report Type: 
  Country: None (occurrence: None)
  Receive Date: 20051114
  Receipt Date: 20051031
  Transmission Date: 20060501
  Serious: Yes (Other)
  Sender: FDA-Public Use
  Company Number: 2005093681

PATIENT
  Sex: Female

DRUGS (1)
  1. RELPAX [Suspect]
     Indication: ILL-DEFINED DISORDER
     Dosage: UNKNOWN
     Route: 065

REACTIONS (2)
  - CONVULSION [None]
  - HYPERSENSITIVITY [None]
